FAERS Safety Report 9055204 (Version 1)
Quarter: 2013Q1

REPORT INFORMATION
  Report Type: Spontaneous
  Country: US (occurrence: US)
  Receive Date: 20130206
  Receipt Date: 20130206
  Transmission Date: 20140127
  Serious: No
  Sender: FDA-Public Use
  Company Number: US-PFIZER INC-2013045168

PATIENT
  Sex: Female

DRUGS (2)
  1. LIPITOR [Suspect]
     Dosage: UNK
  2. VITAMIN D [Suspect]
     Indication: VITAMIN D ABNORMAL
     Dosage: UNK

REACTIONS (1)
  - Vitamin D decreased [Unknown]
